FAERS Safety Report 4886201-7 (Version None)
Quarter: 2006Q1

REPORT INFORMATION
  Report Type: 
  Country: None (occurrence: None)
  Receive Date: 20060118
  Receipt Date: 20060107
  Transmission Date: 20060701
  Serious: Yes (Death, Other)
  Sender: FDA-Public Use
  Company Number: 2005152842

PATIENT
  Age: 45 Year
  Sex: Male

DRUGS (1)
  1. VFEND [Suspect]
     Indication: ILL-DEFINED DISORDER
     Dosage: 400 MG (2 IN 1 D)  02NOV 04NOV

REACTIONS (4)
  - ACQUIRED IMMUNODEFICIENCY SYNDROME [None]
  - CANDIDIASIS [None]
  - MYCOBACTERIUM KANSASII PNEUMONIA [None]
  - NECROTISING RETINITIS [None]
